FAERS Safety Report 11649142 (Version 1)
Quarter: 2015Q4

REPORT INFORMATION
  Report Type: Spontaneous
  Country: CA (occurrence: CA)
  Receive Date: 20151021
  Receipt Date: 20151021
  Transmission Date: 20160304
  Serious: Yes (Other)
  Sender: FDA-Public Use
  Company Number: CA-TEVA-601553ACC

PATIENT
  Age: 43 Year
  Sex: Female
  Weight: 68.1 kg

DRUGS (4)
  1. MSM [Concomitant]
     Active Substance: DIMETHYL SULFONE
  2. BACLOFEN. [Suspect]
     Active Substance: BACLOFEN
     Indication: BACK PAIN
     Dosage: 30 MILLIGRAM DAILY;
     Route: 048
  3. BACLOFEN. [Suspect]
     Active Substance: BACLOFEN
     Indication: BACK INJURY
  4. SYNTHROID - TAB 88MCG [Concomitant]

REACTIONS (10)
  - Ataxia [Recovered/Resolved]
  - Muscle rigidity [Recovered/Resolved]
  - Tremor [Recovered/Resolved]
  - Hypoaesthesia [Recovered/Resolved]
  - Paraesthesia [Recovered/Resolved]
  - Dizziness [Recovered/Resolved]
  - Myalgia [Recovered/Resolved]
  - Coordination abnormal [Recovered/Resolved]
  - Dysarthria [Recovered/Resolved]
  - Movement disorder [Recovered/Resolved]
